FAERS Safety Report 6094581-2 (Version None)
Quarter: 2009Q1

REPORT INFORMATION
  Report Type: 
  Country: None (occurrence: None)
  Receive Date: 20090226
  Receipt Date: 20090224
  Transmission Date: 20090719
  Serious: No
  Sender: FDA-Public Use
  Company Number: US-B.I. PHARMACEUTICALS,INC./RIDGEFIELD-2009-BP-02302BP

PATIENT
  Sex: Female

DRUGS (6)
  1. SPIRIVA [Suspect]
     Indication: NASOPHARYNGITIS
     Dosage: 18MCG
     Route: 055
     Dates: start: 20090223, end: 20090224
  2. SPIRIVA [Suspect]
     Indication: NASAL CONGESTION
  3. TESSALON PERLS [Concomitant]
     Indication: NASAL CONGESTION
     Route: 048
     Dates: start: 20090223
  4. SINGULAIR [Concomitant]
     Indication: HYPERSENSITIVITY
     Route: 048
  5. ZYRTEC [Concomitant]
     Indication: HYPERSENSITIVITY
     Route: 048
  6. QUINAPRIL [Concomitant]
     Indication: HYPERTENSION
     Route: 048

REACTIONS (2)
  - FEELING JITTERY [None]
  - PANIC ATTACK [None]
